FAERS Safety Report 5551765-7 (Version None)
Quarter: 2007Q4

REPORT INFORMATION
  Report Type: 
  Country: None (occurrence: None)
  Receive Date: 20071212
  Receipt Date: 20071130
  Transmission Date: 20080405
  Serious: Yes (Life-Threatening)
  Sender: FDA-Public Use
  Company Number: US-ELI_LILLY_AND_COMPANY-US200711006896

PATIENT
  Sex: Female
  Weight: 43.537 kg

DRUGS (2)
  1. CYMBALTA [Suspect]
     Indication: ANXIETY
     Dosage: 60 MG, DAILY (1/D)
     Dates: start: 20070401, end: 20070917
  2. PROVIGIL [Concomitant]
     Indication: NARCOLEPSY

REACTIONS (42)
  - ABDOMINAL PAIN UPPER [None]
  - AMENORRHOEA [None]
  - AMNESIA [None]
  - ANGER [None]
  - ANOREXIA [None]
  - ARTHRALGIA [None]
  - CAFFEINE CONSUMPTION [None]
  - COLD SWEAT [None]
  - CONFUSIONAL STATE [None]
  - CONTUSION [None]
  - COORDINATION ABNORMAL [None]
  - CRYING [None]
  - DEPRESSION [None]
  - DISORIENTATION [None]
  - DISTURBANCE IN ATTENTION [None]
  - DIZZINESS [None]
  - DRUG INEFFECTIVE [None]
  - DYSARTHRIA [None]
  - DYSPEPSIA [None]
  - DYSPNOEA [None]
  - GAIT DISTURBANCE [None]
  - HEADACHE [None]
  - HOT FLUSH [None]
  - HYPERHIDROSIS [None]
  - INFLUENZA LIKE ILLNESS [None]
  - INTESTINAL FUNCTIONAL DISORDER [None]
  - IRRITABILITY [None]
  - MOOD SWINGS [None]
  - NARCOLEPSY [None]
  - NAUSEA [None]
  - NIGHTMARE [None]
  - PALPITATIONS [None]
  - PARAESTHESIA [None]
  - POLYDIPSIA [None]
  - PSYCHOTIC DISORDER [None]
  - RENAL PAIN [None]
  - RETCHING [None]
  - SUICIDAL IDEATION [None]
  - SYNCOPE [None]
  - THINKING ABNORMAL [None]
  - VISION BLURRED [None]
  - WEIGHT DECREASED [None]
